FAERS Safety Report 10462257 (Version 3)
Quarter: 2014Q4

REPORT INFORMATION
  Report Type: Spontaneous
  Country: JP (occurrence: JP)
  Receive Date: 20140918
  Receipt Date: 20141105
  Transmission Date: 20150528
  Serious: Yes (Hospitalization, Other)
  Sender: FDA-Public Use
  Company Number: JP-GLAXOSMITHKLINE-B1032255A

PATIENT
  Age: 44 Year
  Sex: Male

DRUGS (8)
  1. LIMAS [Concomitant]
     Active Substance: LITHIUM CARBONATE
     Indication: BIPOLAR II DISORDER
     Dosage: UNK MG, UNK
     Dates: start: 20120808, end: 20121009
  2. LIMAS [Concomitant]
     Active Substance: LITHIUM CARBONATE
     Dosage: 1800 MG, QD
     Dates: start: 20130227, end: 20130315
  3. LAMOTRIGINE. [Suspect]
     Active Substance: LAMOTRIGINE
     Indication: BIPOLAR II DISORDER
     Dosage: 25 MG, QD
     Route: 048
     Dates: start: 20130325, end: 20130407
  4. LAMOTRIGINE. [Suspect]
     Active Substance: LAMOTRIGINE
     Dosage: 25 MG, BID
     Route: 048
     Dates: start: 20130408, end: 20130409
  5. LIMAS [Concomitant]
     Active Substance: LITHIUM CARBONATE
     Dosage: 1000 MG, BID
     Dates: start: 20130316, end: 20130324
  6. LIMAS [Concomitant]
     Active Substance: LITHIUM CARBONATE
     Dosage: 800 MG, BID
     Dates: start: 20130325, end: 20130409
  7. UNKNOWN DRUG [Concomitant]
     Active Substance: UNSPECIFIED INGREDIENT
  8. LIMAS [Concomitant]
     Active Substance: LITHIUM CARBONATE
     Dosage: 800 MG, BID
     Dates: start: 20121010, end: 20130226

REACTIONS (4)
  - Drug reaction with eosinophilia and systemic symptoms [Unknown]
  - Eczema [Recovered/Resolved]
  - Rash [Recovering/Resolving]
  - Osteonecrosis [Unknown]

NARRATIVE: CASE EVENT DATE: 20130409
